FAERS Safety Report 16278605 (Version 4)
Quarter: 2019Q2

REPORT INFORMATION
  Report Type: Spontaneous
  Country: CH (occurrence: CH)
  Receive Date: 20190506
  Receipt Date: 20190507
  Transmission Date: 20190711
  Serious: Yes (Death, Other)
  Sender: FDA-Public Use
  Company Number: PHHY2019CH103144

PATIENT
  Sex: Male
  Weight: 100 kg

DRUGS (5)
  1. SIMPONI [Concomitant]
     Active Substance: GOLIMUMAB
     Indication: ANKYLOSING SPONDYLITIS
     Dosage: 50 MG, QMO
     Route: 058
     Dates: start: 201903
  2. LEVOFLOXACIN. [Concomitant]
     Active Substance: LEVOFLOXACIN
     Indication: PNEUMONIA
     Dosage: 500 MG, QD
     Route: 065
     Dates: start: 20190121, end: 20190127
  3. CO-DAFALGAN [Concomitant]
     Active Substance: ACETAMINOPHEN\CODEINE PHOSPHATE
     Indication: PAIN
     Dosage: UNK UKN, PRN (DOSE: UP TO 3X1)
     Route: 065
  4. ECOFENAC CR [Suspect]
     Active Substance: DICLOFENAC SODIUM
     Indication: RHEUMATIC DISORDER
     Dosage: UNK UKN, PRN (1-0-1)
     Route: 065
  5. PANTOPRAZOL [Concomitant]
     Active Substance: PANTOPRAZOLE SODIUM
     Indication: DYSPEPSIA
     Dosage: UNK UKN, UNK (1-0-0)
     Route: 065

REACTIONS (1)
  - Myocardial infarction [Fatal]

NARRATIVE: CASE EVENT DATE: 20190204
